FAERS Safety Report 8001463-5 (Version None)
Quarter: 2011Q4

REPORT INFORMATION
  Report Type: 
  Country: None (occurrence: None)
  Receive Date: 20111219
  Receipt Date: 20111203
  Transmission Date: 20120403
  Serious: Yes (Hospitalization, Other)
  Sender: FDA-Public Use
  Company Number: 2011AP002969

PATIENT
  Age: 35 Year
  Sex: Male

DRUGS (5)
  1. VALPROIC ACID SYRUP [Suspect]
     Indication: CONVULSION
  2. TOPIRAMATE [Concomitant]
  3. CARBAMAZEPINE [Concomitant]
  4. PHENYTOIN [Concomitant]
  5. LAMOTRIGINE [Concomitant]

REACTIONS (4)
  - UNRESPONSIVE TO STIMULI [None]
  - MENTAL STATUS CHANGES [None]
  - SOMNOLENCE [None]
  - HYPERAMMONAEMIA [None]
